FAERS Safety Report 7418775-6 (Version None)
Quarter: 2011Q2

REPORT INFORMATION
  Report Type: 
  Country: None (occurrence: None)
  Receive Date: 20110415
  Receipt Date: 20110401
  Transmission Date: 20111010
  Serious: Yes (Hospitalization)
  Sender: FDA-Public Use
  Company Number: DE-CELGENEUS-062-21880-11040169

PATIENT
  Age: 56 Year
  Sex: Male
  Weight: 76 kg

DRUGS (5)
  1. DEXAMETHASONE [Suspect]
     Indication: MULTIPLE MYELOMA
     Dosage: 40 MILLIGRAM
     Route: 048
     Dates: start: 20110128, end: 20110328
  2. ADRIAMYCIN PFS [Suspect]
     Indication: MULTIPLE MYELOMA
     Dosage: 9 MILLIGRAM/SQ. METER
     Route: 051
     Dates: start: 20110128, end: 20110328
  3. REVLIMID [Suspect]
     Indication: MULTIPLE MYELOMA
     Dosage: 25 MILLIGRAM
     Route: 048
     Dates: start: 20110128, end: 20110331
  4. METOPROLOL [Concomitant]
     Indication: ATRIAL FIBRILLATION
     Dosage: 47.5 MILLIGRAM
     Route: 065
     Dates: start: 20110303, end: 20110324
  5. FLECAINIDE ACETATE [Concomitant]
     Indication: ATRIAL FIBRILLATION
     Dosage: 300 MILLIGRAM
     Route: 065
     Dates: start: 20110303, end: 20110324

REACTIONS (1)
  - CARDIAC OUTPUT DECREASED [None]
